FAERS Safety Report 7136092-9 (Version None)
Quarter: 2010Q4

REPORT INFORMATION
  Report Type: 
  Country: None (occurrence: None)
  Receive Date: 20101204
  Receipt Date: 20101119
  Transmission Date: 20110411
  Serious: Yes (Hospitalization, Other)
  Sender: FDA-Public Use
  Company Number: RU-BAYER-201047768GPV

PATIENT

DRUGS (6)
  1. ANGELIQ [Suspect]
     Indication: HORMONE REPLACEMENT THERAPY
     Dosage: 1 DF (DAILY DOSE), QD, ORAL
     Route: 048
     Dates: start: 20100317, end: 20101014
  2. ANGELIQ [Suspect]
     Route: 048
     Dates: start: 20101025
  3. CARDIOSTATION, LOVASTATIN [Concomitant]
     Dates: end: 20101014
  4. CARDIOMAGNYL [Concomitant]
     Dates: end: 20101014
  5. ENAP [Concomitant]
     Indication: HYPERTENSION
     Dates: end: 20101014
  6. CONCOR [Concomitant]
     Dates: end: 20101014

REACTIONS (2)
  - BRONCHOSPASM [None]
  - OSTEOCHONDROSIS [None]
